FAERS Safety Report 9253233 (Version 2)
Quarter: 2013Q2

REPORT INFORMATION
  Report Type: Not Available
  Country: DE (occurrence: DE)
  Receive Date: 20130424
  Receipt Date: 20130424
  Transmission Date: 20140414
  Serious: Yes (Other)
  Sender: FDA-Public Use
  Company Number: DE-BAXTER-2013BAX003453

PATIENT
  Age: 52 Year
  Sex: 0
  Weight: 91 kg

DRUGS (2)
  1. ADVATE 500 I.E. [Suspect]
     Indication: FACTOR VIII DEFICIENCY
     Dosage: PRIOR TO 15JAN2013:   EVERY 2-4 DAYS
     Route: 042
     Dates: start: 20130115, end: 20130118
  2. ADVATE 500 I.E. [Suspect]
     Indication: PROPHYLAXIS
     Dosage: PRIOR TO 15JAN2013:   2-4 DAYS
     Route: 042

REACTIONS (1)
  - Haemarthrosis [Recovered/Resolved]
